FAERS Safety Report 11543847 (Version 1)
Quarter: 2015Q3

REPORT INFORMATION
  Report Type: Spontaneous
  Country: CA (occurrence: CA)
  Receive Date: 20150924
  Receipt Date: 20150924
  Transmission Date: 20151125
  Serious: Yes (Other)
  Sender: FDA-Public Use
  Company Number: CA-PAR PHARMACEUTICAL COMPANIES-2015SCPR014302

PATIENT

DRUGS (2)
  1. CEFTRIAXONE. [Concomitant]
     Active Substance: CEFTRIAXONE
     Indication: OSTEOMYELITIS
     Dosage: UNK UNK, UNKNOWN
     Route: 065
  2. METRONIDAZOLE. [Suspect]
     Active Substance: METRONIDAZOLE
     Indication: OSTEOMYELITIS
     Dosage: CUMULATIVE DOSE OF MORE THAN 80 GRAMS, UNKNOWN
     Route: 065

REACTIONS (3)
  - Blood creatinine abnormal [Unknown]
  - Atrial fibrillation [Unknown]
  - Toxic encephalopathy [Recovered/Resolved]
